FAERS Safety Report 22643121 (Version 1)
Quarter: 2023Q2

REPORT INFORMATION
  Report Type: Spontaneous
  Country: US (occurrence: US)
  Receive Date: 20230627
  Receipt Date: 20230627
  Transmission Date: 20230722
  Serious: No
  Sender: FDA-Public Use
  Company Number: US-STRIDES ARCOLAB LIMITED-2023SP001387

PATIENT
  Age: 40 Year
  Sex: Male

DRUGS (5)
  1. VERAPAMIL [Suspect]
     Active Substance: VERAPAMIL HYDROCHLORIDE
     Indication: Cerebral vasoconstriction
     Dosage: UNK
     Route: 065
  2. VANCOMYCIN [Concomitant]
     Active Substance: VANCOMYCIN
     Indication: Streptococcal endocarditis
     Dosage: 1 GRAM, BID
     Route: 042
  3. CEFTRIAXONE [Concomitant]
     Active Substance: CEFTRIAXONE
     Indication: Streptococcal endocarditis
     Dosage: 2 GRAM, PER DAY
     Route: 042
  4. NIMODIPINE [Concomitant]
     Active Substance: NIMODIPINE
     Indication: Cerebral vasoconstriction
     Dosage: UNK
     Route: 065
  5. MILRINONE [Concomitant]
     Active Substance: MILRINONE
     Indication: Cerebral vasoconstriction
     Dosage: UNK
     Route: 065

REACTIONS (1)
  - Off label use [Unknown]
